FAERS Safety Report 19999126 (Version 2)
Quarter: 2022Q2

REPORT INFORMATION
  Report Type: Report from Study
  Country: FR (occurrence: FR)
  Receive Date: 20211026
  Receipt Date: 20220418
  Transmission Date: 20220721
  Serious: Yes (Death, Hospitalization)
  Sender: FDA-Public Use
  Company Number: FR-BRISTOL-MYERS SQUIBB COMPANY-BMS-2021-111648

PATIENT
  Sex: Male

DRUGS (2)
  1. NIVOLUMAB [Suspect]
     Active Substance: NIVOLUMAB
     Indication: Non-small cell lung cancer
     Dosage: 480 MILLIGRAM, Q4WK
     Route: 042
     Dates: start: 20210908, end: 20210908
  2. INVESTIGATIONAL PRODUCT [Suspect]
     Active Substance: INVESTIGATIONAL PRODUCT
     Indication: Non-small cell lung cancer
     Dosage: 1 MG/ML
     Route: 058
     Dates: start: 20210908, end: 20210922

REACTIONS (1)
  - General physical health deterioration [Fatal]

NARRATIVE: CASE EVENT DATE: 20210922
